FAERS Safety Report 17985825 (Version 2)
Quarter: 2020Q3

REPORT INFORMATION
  Report Type: Other
  Country: US (occurrence: US)
  Receive Date: 20200706
  Receipt Date: 20200807
  Transmission Date: 20201103
  Serious: Yes (Death, Hospitalization, Other)
  Sender: FDA-Public Use
  Company Number: US-ROCHE-2632078

PATIENT
  Age: 47 Year
  Sex: Female
  Weight: 49.94 kg

DRUGS (23)
  1. BACLOFEN. [Concomitant]
     Active Substance: BACLOFEN
  2. CILOSTAZOL. [Concomitant]
     Active Substance: CILOSTAZOL
  3. NORETHINDRONE ACETATE. [Concomitant]
     Active Substance: NORETHINDRONE ACETATE
  4. OCREVUS [Suspect]
     Active Substance: OCRELIZUMAB
     Dosage: ONGOING? YES
     Route: 042
     Dates: start: 20181217
  5. ALBUTEROL SULFATE. [Concomitant]
     Active Substance: ALBUTEROL SULFATE
  6. MORPHINE SULFATE. [Concomitant]
     Active Substance: MORPHINE SULFATE
  7. OXYBUTYNIN CHLORIDE. [Concomitant]
     Active Substance: OXYBUTYNIN CHLORIDE
  8. PROMETHAZINE HCL [Concomitant]
     Active Substance: PROMETHAZINE HYDROCHLORIDE
  9. OCREVUS [Suspect]
     Active Substance: OCRELIZUMAB
     Dosage: 300 MG/10ML SOLUTION
     Route: 042
  10. ESOMEPRAZOLE MAGNESIUM. [Concomitant]
     Active Substance: ESOMEPRAZOLE MAGNESIUM
  11. LIDOCAINE. [Concomitant]
     Active Substance: LIDOCAINE
  12. ACARBOSE. [Concomitant]
     Active Substance: ACARBOSE
  13. CYCLOBENZAPRINE HCL [Concomitant]
     Active Substance: CYCLOBENZAPRINE HYDROCHLORIDE
  14. IPRATROPIUM BROMIDE. [Concomitant]
     Active Substance: IPRATROPIUM BROMIDE
  15. MONTELUKAST SODIUM. [Concomitant]
     Active Substance: MONTELUKAST SODIUM
  16. LORAZEPAM. [Concomitant]
     Active Substance: LORAZEPAM
  17. EPINEPHRINE. [Concomitant]
     Active Substance: EPINEPHRINE
  18. METAXALONE. [Concomitant]
     Active Substance: METAXALONE
  19. TRIAMCINOLONE ACETONIDE. [Concomitant]
     Active Substance: TRIAMCINOLONE ACETONIDE
  20. SUMATRIPTAN SUCCINATE. [Concomitant]
     Active Substance: SUMATRIPTAN SUCCINATE
  21. PROVIGIL [Suspect]
     Active Substance: MODAFINIL
     Indication: PRODUCT USED FOR UNKNOWN INDICATION
     Route: 065
  22. SPIRONOLACTONE. [Concomitant]
     Active Substance: SPIRONOLACTONE
  23. OCREVUS [Suspect]
     Active Substance: OCRELIZUMAB
     Indication: RELAPSING-REMITTING MULTIPLE SCLEROSIS
     Dosage: ONGOING? NO
     Route: 042
     Dates: start: 20180604, end: 20180618

REACTIONS (6)
  - Infection [Unknown]
  - Death [Fatal]
  - Multiple sclerosis relapse [Unknown]
  - Weight decreased [Not Recovered/Not Resolved]
  - Decubitus ulcer [Not Recovered/Not Resolved]
  - Muscle spasms [Not Recovered/Not Resolved]

NARRATIVE: CASE EVENT DATE: 201907
